FAERS Safety Report 18158162 (Version 3)
Quarter: 2020Q4

REPORT INFORMATION
  Report Type: Spontaneous
  Country: US (occurrence: US)
  Receive Date: 20200817
  Receipt Date: 20201116
  Transmission Date: 20210113
  Serious: Yes (Other)
  Sender: FDA-Public Use
  Company Number: US-GILEAD-2020-0489414

PATIENT
  Age: 43 Year
  Sex: Male

DRUGS (27)
  1. ATAZANAVIR. [Concomitant]
     Active Substance: ATAZANAVIR
  2. AZITHROMYCIN ANHYDROUS. [Concomitant]
     Active Substance: AZITHROMYCIN ANHYDROUS
  3. DOCUSATE SODIUM. [Concomitant]
     Active Substance: DOCUSATE SODIUM
  4. EMTRICITABINE/TENOFOVIR DF [Concomitant]
     Active Substance: EMTRICITABINE
  5. LOSARTAN. [Concomitant]
     Active Substance: LOSARTAN
  6. NOVIR [ENTECAVIR] [Concomitant]
  7. CEFTRIAXONE. [Concomitant]
     Active Substance: CEFTRIAXONE
  8. ACETAMINOPHEN;HYDROCODONE [Concomitant]
     Active Substance: ACETAMINOPHEN\HYDROCODONE
  9. LIDOCAINE. [Concomitant]
     Active Substance: LIDOCAINE
  10. TRIUMEQ [Concomitant]
     Active Substance: ABACAVIR SULFATE\DOLUTEGRAVIR SODIUM\LAMIVUDINE
  11. EFAVIRENZ. [Concomitant]
     Active Substance: EFAVIRENZ
  12. LEVOFLOXACIN. [Concomitant]
     Active Substance: LEVOFLOXACIN
  13. SULFAMETHOXAZOLE [Concomitant]
     Active Substance: SULFAMETHOXAZOLE
  14. ACETAMINOPHEN. [Concomitant]
     Active Substance: ACETAMINOPHEN
  15. DAPSONE. [Concomitant]
     Active Substance: DAPSONE
  16. FLUCONAZOLE. [Concomitant]
     Active Substance: FLUCONAZOLE
  17. HEPARIN SODIUM. [Concomitant]
     Active Substance: HEPARIN SODIUM
  18. ONDANSETRON [Concomitant]
     Active Substance: ONDANSETRON
  19. TRUVADA [Suspect]
     Active Substance: EMTRICITABINE\TENOFOVIR DISOPROXIL FUMARATE
     Dosage: UNK
     Route: 048
     Dates: start: 20070411, end: 201001
  20. KALETRA [Concomitant]
     Active Substance: LOPINAVIR\RITONAVIR
  21. LISINOPRIL. [Concomitant]
     Active Substance: LISINOPRIL
  22. VANCOMYCIN [Concomitant]
     Active Substance: VANCOMYCIN
  23. TRUVADA [Suspect]
     Active Substance: EMTRICITABINE\TENOFOVIR DISOPROXIL FUMARATE
     Indication: HIV INFECTION
     Dosage: UNK
     Route: 048
     Dates: start: 2009
  24. EPIVIR [Concomitant]
     Active Substance: LAMIVUDINE
  25. EPZICOM [Concomitant]
     Active Substance: ABACAVIR SULFATE\LAMIVUDINE
  26. PIPERACILLIN AND TAZOBACTAM [Concomitant]
     Active Substance: PIPERACILLIN SODIUM\TAZOBACTAM SODIUM
  27. LOPINAVIR [Concomitant]
     Active Substance: LOPINAVIR

REACTIONS (4)
  - Emotional distress [Unknown]
  - Chronic kidney disease [Not Recovered/Not Resolved]
  - Pain [Unknown]
  - Anxiety [Unknown]

NARRATIVE: CASE EVENT DATE: 200706
